FAERS Safety Report 25666172 (Version 4)
Quarter: 2025Q4

REPORT INFORMATION
  Report Type: Spontaneous
  Country: GB (occurrence: GB)
  Receive Date: 20250811
  Receipt Date: 20251119
  Transmission Date: 20260117
  Serious: Yes (Hospitalization)
  Sender: MYLAN
  Company Number: GB-MYLANLABS-2025M1067199

PATIENT
  Sex: Female

DRUGS (3)
  1. CLOZARIL [Suspect]
     Active Substance: CLOZAPINE
     Indication: Schizophrenia
     Dosage: UNK
  2. CLOZARIL [Suspect]
     Active Substance: CLOZAPINE
     Dosage: 300 MILLIGRAM, QD (DAILY DOSE)
     Dates: end: 20250803
  3. CLOZARIL [Suspect]
     Active Substance: CLOZAPINE
     Dosage: UNK, BID (100MG MANE AND 125MG NOCTE AT TIME)
     Dates: start: 20250829, end: 20251022

REACTIONS (7)
  - Troponin increased [Unknown]
  - C-reactive protein increased [Unknown]
  - Schizophrenia [Unknown]
  - Constipation [Recovered/Resolved]
  - Salivary hypersecretion [Unknown]
  - Tachycardia [Unknown]
  - Fibrin D dimer increased [Unknown]

NARRATIVE: CASE EVENT DATE: 20250731
